FAERS Safety Report 4944028-1 (Version None)
Quarter: 2006Q1

REPORT INFORMATION
  Report Type: 
  Country: None (occurrence: None)
  Receive Date: 20060310
  Receipt Date: 20060221
  Transmission Date: 20060701
  Serious: Yes (Hospitalization, Other)
  Sender: FDA-Public Use
  Company Number: US200602004279

PATIENT
  Sex: Female

DRUGS (2)
  1. ZYPREXA [Suspect]
     Dosage: 15 MG, ORAL
     Route: 048
     Dates: end: 20050101
  2. ZYPREXA [Suspect]
     Dosage: 15 MG, ORAL
     Route: 048
     Dates: start: 20060201, end: 20060201

REACTIONS (6)
  - CARDIAC FAILURE CONGESTIVE [None]
  - DIABETES MELLITUS NON-INSULIN-DEPENDENT [None]
  - DYSTONIA [None]
  - HEPATIC ENZYME INCREASED [None]
  - OEDEMA [None]
  - WEIGHT INCREASED [None]
